FAERS Safety Report 4913644-5 (Version None)
Quarter: 2006Q1

REPORT INFORMATION
  Report Type: 
  Country: None (occurrence: None)
  Receive Date: 20060213
  Receipt Date: 20060130
  Transmission Date: 20060701
  Serious: Yes (Death)
  Sender: FDA-Public Use
  Company Number: 2006JP000195

PATIENT
  Age: 88 Year
  Sex: Female

DRUGS (2)
  1. FUNGUARD (MICAFUNGIN) INJECTION [Suspect]
     Dosage: 50 MG, IV DRIP
     Route: 041
  2. MINOCYCLINE HCL [Concomitant]

REACTIONS (1)
  - RESPIRATORY ARREST [None]
